FAERS Safety Report 5161937-1 (Version None)
Quarter: 2006Q4

REPORT INFORMATION
  Report Type: 
  Country: None (occurrence: None)
  Receive Date: 20061130
  Receipt Date: 20061030
  Transmission Date: 20070319
  Serious: No
  Sender: FDA-Public Use
  Company Number: US-GLAXOSMITHKLINE-A0625350A

PATIENT
  Age: 64 Year
  Sex: Male

DRUGS (3)
  1. WELLBUTRIN XL [Suspect]
     Indication: DEPRESSION
     Dosage: 300MG PER DAY
     Route: 048
  2. BENICAR [Concomitant]
  3. ASPIRIN [Concomitant]

REACTIONS (2)
  - ALOPECIA [None]
  - HYPERTENSION [None]
